FAERS Safety Report 10172257 (Version 3)
Quarter: 2014Q3

REPORT INFORMATION
  Report Type: Spontaneous
  Country: US (occurrence: US)
  Receive Date: 20140515
  Receipt Date: 20140728
  Transmission Date: 20150326
  Serious: Yes (Hospitalization)
  Sender: FDA-Public Use
  Company Number: US-JNJFOC-20140504184

PATIENT
  Age: 1 Year
  Sex: Female

DRUGS (1)
  1. INFANTS TYLENOL [Suspect]
     Active Substance: ACETAMINOPHEN
     Indication: PYREXIA
     Dosage: DOSAGE: 3.75ML AT TWO DIFFERENT TIMES 4 HOURS APART
     Route: 048
     Dates: start: 20140421, end: 20140422

REACTIONS (3)
  - Diarrhoea [Unknown]
  - Convulsion [Recovered/Resolved]
  - Nonspecific reaction [None]

NARRATIVE: CASE EVENT DATE: 201404
